FAERS Safety Report 17737638 (Version 1)
Quarter: 2020Q2

REPORT INFORMATION
  Report Type: Spontaneous
  Country: US (occurrence: US)
  Receive Date: 20200504
  Receipt Date: 20200504
  Transmission Date: 20200714
  Serious: No
  Sender: FDA-Public Use
  Company Number: US-GALDERMA-US2020014513

PATIENT
  Sex: Female

DRUGS (3)
  1. DIFFERIN GENTLE CLEANSER (COSMETICS) [Suspect]
     Active Substance: COSMETICS
     Indication: ACNE
     Route: 065
     Dates: start: 2020
  2. DIFFERIN OIL CONTROL MOISTURIZER SPF 30 [Suspect]
     Active Substance: AVOBENZONE\OCTISALATE\OCTOCRYLENE
     Indication: ACNE
     Route: 061
     Dates: start: 2020
  3. DIFFERIN GEL [Suspect]
     Active Substance: ADAPALENE
     Indication: ACNE
     Dosage: 0.1%
     Route: 061
     Dates: start: 2020

REACTIONS (4)
  - Acne [Unknown]
  - Hypersensitivity [Unknown]
  - Skin burning sensation [Unknown]
  - Eczema [Unknown]

NARRATIVE: CASE EVENT DATE: 2020
